FAERS Safety Report 7397270-7 (Version None)
Quarter: 2011Q2

REPORT INFORMATION
  Report Type: 
  Country: None (occurrence: None)
  Receive Date: 20110406
  Receipt Date: 20110324
  Transmission Date: 20111010
  Serious: Yes (Hospitalization)
  Sender: FDA-Public Use
  Company Number: CH-JNJFOC-20110309529

PATIENT
  Age: 86 Year
  Sex: Female

DRUGS (7)
  1. ZOLPIDEM [Concomitant]
     Route: 048
  2. REMERON [Suspect]
     Indication: PRODUCT USED FOR UNKNOWN INDICATION
     Route: 048
  3. TOLTERODINE TARTRATE [Suspect]
     Indication: PRODUCT USED FOR UNKNOWN INDICATION
     Route: 048
  4. DURAGESIC-100 [Suspect]
     Indication: BACK PAIN
     Route: 062
  5. MOTILIUM [Concomitant]
     Route: 048
  6. DAFALGAN [Concomitant]
     Route: 065
  7. JANUVIA [Suspect]
     Indication: PRODUCT USED FOR UNKNOWN INDICATION
     Route: 048

REACTIONS (11)
  - NAUSEA [None]
  - C-REACTIVE PROTEIN INCREASED [None]
  - HYPOKALAEMIA [None]
  - LIVER FUNCTION TEST ABNORMAL [None]
  - CONSTIPATION [None]
  - VOMITING [None]
  - WEIGHT DECREASED [None]
  - LEUKOCYTOSIS [None]
  - DECREASED APPETITE [None]
  - GENERAL PHYSICAL HEALTH DETERIORATION [None]
  - HYPONATRAEMIA [None]
